FAERS Safety Report 8369403-7 (Version None)
Quarter: 2012Q2

REPORT INFORMATION
  Report Type: 
  Country: None (occurrence: None)
  Receive Date: 20120516
  Receipt Date: 20120516
  Transmission Date: 20120825
  Serious: Yes (Other)
  Sender: FDA-Public Use
  Company Number: None

PATIENT
  Age: 64 Year
  Sex: Female
  Weight: 63.9572 kg

DRUGS (1)
  1. CALCITONIN SALMON [Suspect]
     Indication: OSTEOPOROSIS
     Dosage: ONE SPRAY IN ONE NOSTRAL ONCE A DAY NASAL
     Route: 045
     Dates: start: 20120502, end: 20120512

REACTIONS (4)
  - BACK PAIN [None]
  - GAIT DISTURBANCE [None]
  - MUSCLE SPASMS [None]
  - MYALGIA [None]
